FAERS Safety Report 15039629 (Version 4)
Quarter: 2018Q4

REPORT INFORMATION
  Report Type: Spontaneous
  Country: GB (occurrence: GB)
  Receive Date: 20180620
  Receipt Date: 20181016
  Transmission Date: 20190204
  Serious: Yes (Hospitalization)
  Sender: FDA-Public Use
  Company Number: GB-BIOGEN-2017BI00468125

PATIENT
  Age: 65 Year
  Sex: Male

DRUGS (1)
  1. FAMPYRA [Suspect]
     Active Substance: DALFAMPRIDINE
     Indication: MULTIPLE SCLEROSIS
     Route: 048
     Dates: start: 20130416

REACTIONS (4)
  - Gait inability [Unknown]
  - Malaise [Unknown]
  - Pulmonary embolism [Unknown]
  - Muscle tightness [Unknown]

NARRATIVE: CASE EVENT DATE: 20180716
